FAERS Safety Report 4480103-6 (Version None)
Quarter: 2004Q4

REPORT INFORMATION
  Report Type: 
  Country: None (occurrence: None)
  Receive Date: 20041018
  Receipt Date: 20041004
  Transmission Date: 20050328
  Serious: Yes (Other)
  Sender: FDA-Public Use
  Company Number: M2004.1499

PATIENT
  Age: 45 Year
  Sex: Female
  Weight: 42 kg

DRUGS (6)
  1. ISONIAZID [Suspect]
     Indication: DISSEMINATED TUBERCULOSIS
     Dosage: 300 MG/DAY, ORAL
     Route: 048
  2. RIFAMPICIN [Suspect]
     Indication: DISSEMINATED TUBERCULOSIS
     Dosage: 450 MG/DAY, ORAL
     Route: 048
  3. ETHAMBUTOL HCL [Suspect]
     Indication: DISSEMINATED TUBERCULOSIS
     Dosage: 800 MG/DAY, ORAL
     Route: 048
  4. ETHAMBUTOL [Suspect]
     Dosage: 800 MG/DAY, QW2, ORAL
  5. DEXAMETHASONE [Concomitant]
  6. MANNITOL [Concomitant]

REACTIONS (11)
  - BLOOD CREATININE DECREASED [None]
  - BLOOD UREA INCREASED [None]
  - DEPRESSED LEVEL OF CONSCIOUSNESS [None]
  - DISSEMINATED TUBERCULOSIS [None]
  - DYSARTHRIA [None]
  - HAEMOGLOBIN DECREASED [None]
  - HEMIPARESIS [None]
  - MONOCYTE COUNT DECREASED [None]
  - RENAL IMPAIRMENT [None]
  - RETINAL HAEMORRHAGE [None]
  - THROMBOCYTOPENIA [None]
